FAERS Safety Report 6373483-8 (Version None)
Quarter: 2009Q3

REPORT INFORMATION
  Report Type: 
  Country: None (occurrence: None)
  Receive Date: 20090924
  Receipt Date: 20090921
  Transmission Date: 20100115
  Serious: Yes (Life-Threatening, Hospitalization, Other)
  Sender: FDA-Public Use
  Company Number: GB-JNJFOC-20080906716

PATIENT
  Age: 40 Year
  Sex: Female

DRUGS (1)
  1. RISPERIDONE [Suspect]
     Indication: DELUSIONAL DISORDER, UNSPECIFIED TYPE
     Route: 030

REACTIONS (1)
  - PULMONARY EMBOLISM [None]
